FAERS Safety Report 18285292 (Version 2)
Quarter: 2020Q4

REPORT INFORMATION
  Report Type: Report from Study
  Country: US (occurrence: US)
  Receive Date: 20200918
  Receipt Date: 20201005
  Transmission Date: 20210113
  Serious: No
  Sender: FDA-Public Use
  Company Number: US-DSJP-DSU-2020-126684

PATIENT
  Sex: Male

DRUGS (1)
  1. PEXIDARTINIB [Suspect]
     Active Substance: PEXIDARTINIB
     Indication: BONE GIANT CELL TUMOUR
     Dosage: 800 MG, QD
     Route: 048
     Dates: start: 20200928

REACTIONS (1)
  - No adverse event [Unknown]
